FAERS Safety Report 12913598 (Version 5)
Quarter: 2018Q2

REPORT INFORMATION
  Report Type: Spontaneous
  Country: US (occurrence: US)
  Receive Date: 20161104
  Receipt Date: 20180601
  Transmission Date: 20180711
  Serious: Yes (Other)
  Sender: FDA-Public Use
  Company Number: ALCN2016US007458

PATIENT
  Sex: Female

DRUGS (5)
  1. BSS [Suspect]
     Active Substance: CALCIUM CHLORIDE\MAGNESIUM CHLORIDE\POTASSIUM CHLORIDE\SODIUM ACETATE\SODIUM CHLORIDE\SODIUM CITRATE
     Indication: EYE IRRIGATION
     Route: 031
  2. VIGAMOX [Suspect]
     Active Substance: MOXIFLOXACIN HYDROCHLORIDE
     Indication: PREOPERATIVE CARE
     Route: 065
  3. CYCLO [Suspect]
     Active Substance: UNSPECIFIED INGREDIENT
     Indication: PREOPERATIVE CARE
     Route: 065
  4. MARCAINE [Suspect]
     Active Substance: BUPIVACAINE HYDROCHLORIDE
     Indication: PREOPERATIVE CARE
     Route: 065
  5. OCUFEN [Suspect]
     Active Substance: FLURBIPROFEN SODIUM
     Indication: PREOPERATIVE CARE
     Route: 065

REACTIONS (1)
  - Endophthalmitis [Unknown]

NARRATIVE: CASE EVENT DATE: 20161031
